FAERS Safety Report 18300776 (Version 1)
Quarter: 2020Q3

REPORT INFORMATION
  Report Type: Other
  Country: US (occurrence: US)
  Receive Date: 20200923
  Receipt Date: 20200923
  Transmission Date: 20201103
  Serious: Yes (Hospitalization)
  Sender: FDA-Public Use
  Company Number: US-ROCHE-2214809

PATIENT
  Age: 5 Year
  Sex: Female
  Weight: 13.9 kg

DRUGS (1)
  1. ENTRECTINIB [Suspect]
     Active Substance: ENTRECTINIB
     Indication: FIBROSARCOMA
     Dosage: 5 DAYS/WEEK
     Route: 048
     Dates: start: 20181031, end: 20181109

REACTIONS (9)
  - Wheezing [Recovered/Resolved]
  - Hypoxia [Recovered/Resolved]
  - Viral upper respiratory tract infection [Recovered/Resolved]
  - Tachycardia [Recovered/Resolved]
  - Pyrexia [Recovered/Resolved]
  - Dyspnoea [Recovered/Resolved]
  - Pneumonia [Recovered/Resolved]
  - Cough [Not Recovered/Not Resolved]
  - Fatigue [Recovered/Resolved]

NARRATIVE: CASE EVENT DATE: 20181109
